FAERS Safety Report 9649334 (Version 1)
Quarter: 2013Q4

REPORT INFORMATION
  Report Type: Spontaneous
  Country: US (occurrence: None)
  Receive Date: 20131018
  Receipt Date: 20131018
  Transmission Date: 20140711
  Serious: No
  Sender: FDA-Public Use
  Company Number: AEGR000110

PATIENT
  Age: 49 Year
  Sex: Female
  Weight: 66.7 kg

DRUGS (5)
  1. JUXTAPID (LOMITAPIDE) CAPSULE, 5MG [Suspect]
     Indication: HYPERCHOLESTEROLAEMIA
     Route: 048
     Dates: start: 20130514
  2. CRESTOR (ROSUVASTATIN CALCIUM), 20 MG [Concomitant]
  3. METOPROLOL (METOPROLOL SUCCINATE), 50 MG [Concomitant]
  4. NORCO (HYDROCODONE BITARTRATE, PARACETAMOL), 5/325 GM [Concomitant]
  5. ASPIRIN (ACETYLSALICYLIC ACID), 81 MG [Concomitant]

REACTIONS (3)
  - Weight decreased [None]
  - Diarrhoea [None]
  - Nausea [None]
